FAERS Safety Report 21094919 (Version 1)
Quarter: 2022Q3

REPORT INFORMATION
  Report Type: Spontaneous
  Country: NL (occurrence: NL)
  Receive Date: 20220718
  Receipt Date: 20220718
  Transmission Date: 20221027
  Serious: Yes (Other)
  Sender: FDA-Public Use
  Company Number: NL-002147023-NVSC2022NL155324

PATIENT
  Sex: Female

DRUGS (4)
  1. DASATINIB [Suspect]
     Active Substance: DASATINIB
     Indication: Chronic myeloid leukaemia
     Dosage: UNK
     Route: 065
     Dates: start: 20190818, end: 20211010
  2. IMATINIB [Suspect]
     Active Substance: IMATINIB
     Indication: Chronic myeloid leukaemia
     Dosage: UNK
     Route: 065
     Dates: start: 20010605, end: 20140215
  3. NILOTINIB [Suspect]
     Active Substance: NILOTINIB
     Indication: Chronic myeloid leukaemia
     Dosage: UNK
     Route: 065
     Dates: start: 20140214, end: 20180625
  4. INTERFERON ALFA NOS [Suspect]
     Active Substance: INTERFERON ALFA-2A OR INTERFERON ALFA-2B
     Indication: Chronic myeloid leukaemia
     Dosage: UNK
     Route: 065
     Dates: start: 19990312, end: 20010406

REACTIONS (4)
  - Philadelphia chromosome positive [Unknown]
  - Drug intolerance [Unknown]
  - Weight increased [Unknown]
  - Fatigue [Unknown]
